FAERS Safety Report 25810887 (Version 1)
Quarter: 2025Q3

REPORT INFORMATION
  Report Type: Spontaneous
  Country: AU (occurrence: AU)
  Receive Date: 20250917
  Receipt Date: 20250917
  Transmission Date: 20251021
  Serious: Yes (Death, Other)
  Sender: MSN LABORATORIES PRIVATE LIMITED
  Company Number: AU-MLMSERVICE-20220919-3781090-1

PATIENT

DRUGS (9)
  1. PREGABALIN [Suspect]
     Active Substance: PREGABALIN
     Indication: Joint injury
     Route: 065
  2. PREGABALIN [Suspect]
     Active Substance: PREGABALIN
     Indication: Injury
  3. PREGABALIN [Suspect]
     Active Substance: PREGABALIN
     Indication: Back pain
  4. AMITRIPTYLINE [Suspect]
     Active Substance: AMITRIPTYLINE
     Indication: Back pain
     Route: 065
  5. AMITRIPTYLINE [Suspect]
     Active Substance: AMITRIPTYLINE
     Indication: Joint injury
  6. AMITRIPTYLINE [Suspect]
     Active Substance: AMITRIPTYLINE
     Indication: Injury
  7. OXYCODONE [Suspect]
     Active Substance: OXYCODONE
     Indication: Joint injury
     Route: 065
  8. OXYCODONE [Suspect]
     Active Substance: OXYCODONE
     Indication: Injury
  9. OXYCODONE [Suspect]
     Active Substance: OXYCODONE
     Indication: Back pain

REACTIONS (2)
  - Product prescribing error [Fatal]
  - Toxicity to various agents [Fatal]
